FAERS Safety Report 6309417-1 (Version None)
Quarter: 2009Q3

REPORT INFORMATION
  Report Type: 
  Country: None (occurrence: None)
  Receive Date: 20090814
  Receipt Date: 20090806
  Transmission Date: 20100115
  Serious: No
  Sender: FDA-Public Use
  Company Number: DE-ASTRAZENECA-2009PK01250

PATIENT
  Age: 30992 Day
  Sex: Female
  Weight: 66 kg

DRUGS (8)
  1. SEROQUEL XR [Suspect]
     Indication: PSYCHOTIC DISORDER
     Route: 048
  2. SEROQUEL XR [Suspect]
     Indication: DELIRIUM
     Route: 048
  3. SEROQUEL XR [Suspect]
     Route: 048
     Dates: start: 20090324, end: 20090324
  4. SEROQUEL XR [Suspect]
     Route: 048
     Dates: start: 20090324, end: 20090324
  5. SEROQUEL XR [Suspect]
     Route: 048
  6. SEROQUEL XR [Suspect]
     Route: 048
  7. GLYBURIDE [Concomitant]
     Indication: DIABETES MELLITUS
     Route: 048
  8. AXURA [Concomitant]
     Indication: DEMENTIA
     Route: 048

REACTIONS (1)
  - SYNCOPE [None]
